FAERS Safety Report 7204920-4 (Version None)
Quarter: 2010Q4

REPORT INFORMATION
  Report Type: 
  Country: None (occurrence: None)
  Receive Date: 20101217
  Receipt Date: 20101206
  Transmission Date: 20110411
  Serious: Yes (Hospitalization, Other)
  Sender: FDA-Public Use
  Company Number: 2009AC000416

PATIENT
  Age: 46 Year
  Sex: Male
  Weight: 124.7392 kg

DRUGS (36)
  1. DIGOXIN [Suspect]
     Dosage: 250 MCG;QD;PO
     Route: 048
     Dates: start: 20021101
  2. DIGOXIN [Suspect]
     Indication: SUPRAVENTRICULAR TACHYCARDIA
     Dosage: IV
     Route: 042
     Dates: start: 20021102, end: 20021103
  3. DIGOXIN [Suspect]
     Dosage: 0.25 MG;QD;PO
     Route: 048
     Dates: start: 20021104, end: 20021221
  4. DIGOXIN [Suspect]
     Dosage: 0.25 MG;QD;PO
     Route: 048
     Dates: start: 20061009, end: 20080301
  5. DIGOXIN [Suspect]
     Dosage: 0.125 MG;QD;PO
     Route: 048
     Dates: start: 20090113, end: 20091001
  6. COUMADIN [Concomitant]
  7. LASIX [Concomitant]
  8. SIMVASTATIN [Concomitant]
  9. TOPROL-XL [Concomitant]
  10. VERAPAMIL [Concomitant]
  11. NAPROXEN [Concomitant]
  12. ALPRAZOLAM [Concomitant]
  13. DOXYCYCLINE [Concomitant]
  14. TRIMOX [Concomitant]
  15. METOPROLOL [Concomitant]
  16. CLARITIN [Concomitant]
  17. MECLIZINE [Concomitant]
  18. CARDIZEM [Concomitant]
  19. PROPAFENONE HCL [Concomitant]
  20. DILTIAZIDE [Concomitant]
  21. BETAPACE [Concomitant]
  22. PROMETHAZINE [Concomitant]
  23. CEPHALEXIN [Concomitant]
  24. BISACODYL [Concomitant]
  25. COLYTE [Concomitant]
  26. AMOXICILLIN [Concomitant]
  27. ALBUTEROL [Concomitant]
  28. LEVAQUIN [Concomitant]
  29. PREDNISONE [Concomitant]
  30. RYTHMOL [Concomitant]
  31. TIKOSYN [Concomitant]
  32. LISINOPRIL [Concomitant]
  33. LOPRESSOR [Concomitant]
  34. BENICAR [Concomitant]
  35. PROTONIX [Concomitant]
  36. MULTAQ [Concomitant]

REACTIONS (31)
  - ABDOMINAL DISTENSION [None]
  - ANXIETY [None]
  - ARRHYTHMIA [None]
  - ASTHENIA [None]
  - ATRIAL FIBRILLATION [None]
  - ATRIAL FLUTTER [None]
  - ATRIOVENTRICULAR DISSOCIATION [None]
  - BALANCE DISORDER [None]
  - BLOOD PRESSURE DECREASED [None]
  - BRONCHIAL HYPERREACTIVITY [None]
  - BRONCHITIS CHRONIC [None]
  - CARDIAC FAILURE CONGESTIVE [None]
  - CHEST PAIN [None]
  - COUGH [None]
  - DIVORCED [None]
  - DYSPNOEA [None]
  - ECONOMIC PROBLEM [None]
  - FATIGUE [None]
  - HEART RATE DECREASED [None]
  - HYPERTROPHIC CARDIOMYOPATHY [None]
  - LABYRINTHITIS [None]
  - MULTIPLE INJURIES [None]
  - OEDEMA PERIPHERAL [None]
  - PAIN [None]
  - PALPITATIONS [None]
  - PNEUMONIA [None]
  - QUALITY OF LIFE DECREASED [None]
  - SINUSITIS [None]
  - SUPRAVENTRICULAR EXTRASYSTOLES [None]
  - SUPRAVENTRICULAR TACHYCARDIA [None]
  - VERTIGO [None]
